FAERS Safety Report 13822856 (Version 1)
Quarter: 2017Q3

REPORT INFORMATION
  Report Type: Spontaneous
  Country: CO (occurrence: CO)
  Receive Date: 20170801
  Receipt Date: 20170801
  Transmission Date: 20171127
  Serious: Yes (Other)
  Sender: FDA-Public Use
  Company Number: CO-CELGENEUS-COL-20170707520

PATIENT
  Age: 58 Year
  Sex: Female

DRUGS (1)
  1. ABRAXANE [Suspect]
     Active Substance: PACLITAXEL
     Indication: PANCREATIC CARCINOMA
     Dosage: 190 MILLIGRAM
     Route: 041
     Dates: start: 20170107

REACTIONS (5)
  - Trichoglossia [Unknown]
  - Vomiting [Unknown]
  - Nail discolouration [Unknown]
  - Tongue ulceration [Unknown]
  - Dry skin [Unknown]

NARRATIVE: CASE EVENT DATE: 20170407
